FAERS Safety Report 14782963 (Version 1)
Quarter: 2018Q2

REPORT INFORMATION
  Report Type: Spontaneous
  Country: DE (occurrence: DE)
  Receive Date: 20180420
  Receipt Date: 20180420
  Transmission Date: 20180711
  Serious: Yes (Other)
  Sender: FDA-Public Use
  Company Number: PHHY2018DE067429

PATIENT
  Age: 42 Year
  Sex: Male
  Weight: 82 kg

DRUGS (5)
  1. RIBAVIRIN. [Suspect]
     Active Substance: RIBAVIRIN
     Dosage: 600 MG, UNK
     Route: 065
     Dates: start: 20170624, end: 20170929
  2. RILPIVIRINA [Concomitant]
     Active Substance: RILPIVIRINE
     Indication: ANTIRETROVIRAL THERAPY
     Dosage: 25 MG, UNK
     Route: 065
  3. TENOFOVIR [Concomitant]
     Active Substance: TENOFOVIR
     Indication: ANTIRETROVIRAL THERAPY
     Dosage: 245 MG, UNK
     Route: 065
  4. RIBAVIRIN. [Suspect]
     Active Substance: RIBAVIRIN
     Dosage: 1200 MG, QD
     Route: 065
     Dates: start: 20170609, end: 20170624
  5. EMTRICITABINE [Concomitant]
     Active Substance: EMTRICITABINE
     Indication: HIV INFECTION
     Dosage: 200 MG, UNK
     Route: 065

REACTIONS (4)
  - Anaemia [Not Recovered/Not Resolved]
  - Skin disorder [Unknown]
  - Fatigue [Not Recovered/Not Resolved]
  - Product use issue [Unknown]

NARRATIVE: CASE EVENT DATE: 20170623
